FAERS Safety Report 8226223-1 (Version None)
Quarter: 2012Q1

REPORT INFORMATION
  Report Type: 
  Country: None (occurrence: None)
  Receive Date: 20120307
  Receipt Date: 20100830
  Transmission Date: 20120608
  Serious: No
  Sender: FDA-Public Use
  Company Number: PHEH2010US03550

PATIENT
  Sex: Female

DRUGS (1)
  1. AFINITOR [Suspect]
     Dosage: 10 MG, QD, ORAL
     Route: 048
     Dates: start: 20100804, end: 20100820

REACTIONS (4)
  - MOUTH ULCERATION [None]
  - ARTHRALGIA [None]
  - AGEUSIA [None]
  - PAIN [None]
